FAERS Safety Report 19086468 (Version 1)
Quarter: 2021Q2

REPORT INFORMATION
  Report Type: Spontaneous
  Country: US (occurrence: US)
  Receive Date: 20210401
  Receipt Date: 20210401
  Transmission Date: 20210717
  Serious: Yes (Hospitalization)
  Sender: FDA-Public Use
  Company Number: None

PATIENT
  Sex: Male

DRUGS (4)
  1. SIMVASTATIN, VITAMIN D, FARXIGA, [Concomitant]
  2. PREDNISONE, METHOTREXATE, CARVEDILOL, FOLIC ACID, ENTRESTO [Concomitant]
  3. ATOVAQUONE?PROGUANIL [Concomitant]
     Active Substance: ATOVAQUONE\PROGUANIL HYDROCHLORIDE
  4. HUMIRA [Suspect]
     Active Substance: ADALIMUMAB
     Indication: PRODUCT USED FOR UNKNOWN INDICATION
     Dosage: ?          OTHER FREQUENCY:EVERY OTHER WEEK;?
     Route: 058
     Dates: start: 20210318

REACTIONS (1)
  - Adverse drug reaction [None]
